FAERS Safety Report 26165450 (Version 1)
Quarter: 2025Q4

REPORT INFORMATION
  Report Type: Spontaneous
  Country: US (occurrence: US)
  Receive Date: 20251216
  Receipt Date: 20251216
  Transmission Date: 20260117
  Serious: Yes (Other)
  Sender: DR REDDYS
  Company Number: US-MLMSERVICE-20251201-PI735343-00034-1

PATIENT
  Age: 74 Year
  Sex: Male

DRUGS (2)
  1. AMIODARONE [Suspect]
     Active Substance: AMIODARONE
     Indication: Sinus node dysfunction
     Dates: start: 2017, end: 2021
  2. AMIODARONE [Suspect]
     Active Substance: AMIODARONE
     Indication: Coronary artery disease

REACTIONS (2)
  - Neuropathy peripheral [Unknown]
  - Argyria [Unknown]

NARRATIVE: CASE EVENT DATE: 20250101
